FAERS Safety Report 9664432 (Version 3)
Quarter: 2014Q1

REPORT INFORMATION
  Report Type: Spontaneous
  Country: IT (occurrence: IT)
  Receive Date: 20131101
  Receipt Date: 20140121
  Transmission Date: 20141002
  Serious: Yes (Other)
  Sender: FDA-Public Use
  Company Number: IT-RANBAXY-2013RR-74821

PATIENT
  Age: 23 Year
  Sex: Female

DRUGS (1)
  1. AMOXICILLIN/CLAVULANIC ACID [Suspect]
     Indication: TONSILLITIS
     Dosage: 2 DF/DAY
     Route: 048
     Dates: start: 20131014, end: 20131015

REACTIONS (1)
  - Dyspepsia [Recovered/Resolved]
